FAERS Safety Report 4835307-7 (Version None)
Quarter: 2005Q4

REPORT INFORMATION
  Report Type: 
  Country: None (occurrence: None)
  Receive Date: 20051118
  Receipt Date: 20051109
  Transmission Date: 20060501
  Serious: Yes (Other)
  Sender: FDA-Public Use
  Company Number: HQWYE508111NOV05

PATIENT
  Sex: Male

DRUGS (1)
  1. ADVIL [Suspect]
     Indication: PAIN IN EXTREMITY
     Dosage: 2 TABLET 3X PER 1 DAY, ORAL; STARTED YEARS AGO
     Route: 048

REACTIONS (1)
  - PLATELET COUNT DECREASED [None]
